FAERS Safety Report 4314859-X (Version None)
Quarter: 2004Q1

REPORT INFORMATION
  Report Type: 
  Country: None (occurrence: None)
  Receive Date: 20040308
  Receipt Date: 20040224
  Transmission Date: 20041129
  Serious: Yes (Hospitalization, Other)
  Sender: FDA-Public Use
  Company Number: HQWYE277624FEB04

PATIENT
  Age: 75 Year
  Sex: Male

DRUGS (8)
  1. CARDIOCOR (BISOPROLOL, TABLET) [Suspect]
     Indication: CARDIAC FAILURE CONGESTIVE
     Dosage: 5 MG 1 X PER 1 DAY ORAL
     Route: 048
     Dates: start: 20030506, end: 20031221
  2. INSULATARD NPH HUMAN [Concomitant]
  3. LASIX [Concomitant]
  4. OMEPRAZOLE [Concomitant]
  5. CREON [Concomitant]
  6. CORVASAL (MOLSIDOMINE) [Concomitant]
  7. XATRAL (ALFUZOSIN) [Concomitant]
  8. ACTRAPID HUMAN (INSULIN HUMAN) [Concomitant]

REACTIONS (4)
  - FOOT AMPUTATION [None]
  - NECROSIS ISCHAEMIC [None]
  - STAPHYLOCOCCAL SEPSIS [None]
  - TOE AMPUTATION [None]
